FAERS Safety Report 9986946 (Version 1)
Quarter: 2014Q1

REPORT INFORMATION
  Report Type: Report from Study
  Country: US (occurrence: US)
  Receive Date: 20140307
  Receipt Date: 20140307
  Transmission Date: 20141002
  Serious: No
  Sender: FDA-Public Use
  Company Number: US-ABBVIE-13P-163-1080472-00

PATIENT
  Age: 28 Year
  Sex: Female

DRUGS (4)
  1. HUMIRA [Suspect]
     Indication: CROHN^S DISEASE
     Dosage: LOADING DOSE
     Dates: start: 20130415
  2. AVIANE [Concomitant]
     Indication: CONTRACEPTION
     Dosage: .10/0.2 MG
  3. AVIANE [Concomitant]
     Indication: SKIN DISORDER
  4. UNKNOWN MEDICATION [Concomitant]
     Indication: HYPERHIDROSIS

REACTIONS (2)
  - Injection site pain [Recovering/Resolving]
  - Injection site bruising [Recovering/Resolving]
